FAERS Safety Report 7251680-7 (Version None)
Quarter: 2011Q1

REPORT INFORMATION
  Report Type: 
  Country: None (occurrence: None)
  Receive Date: 20110128
  Receipt Date: 20110112
  Transmission Date: 20110831
  Serious: No
  Sender: FDA-Public Use
  Company Number: US-BAYER-2010-006308

PATIENT

DRUGS (4)
  1. AMOXICILLIN [Concomitant]
  2. BETAPACE AF [Suspect]
  3. AMPICILLIN [Concomitant]
  4. TIKOSYN [Concomitant]

REACTIONS (1)
  - HEART RATE IRREGULAR [None]
